FAERS Safety Report 5622594-0 (Version None)
Quarter: 2008Q1

REPORT INFORMATION
  Report Type: 
  Country: None (occurrence: None)
  Receive Date: 20080211
  Receipt Date: 20080211
  Transmission Date: 20080703
  Serious: Yes (Other)
  Sender: FDA-Public Use
  Company Number: None

PATIENT
  Age: 59 Year
  Sex: Female
  Weight: 78.4723 kg

DRUGS (7)
  1. FLUOXETINE [Suspect]
     Indication: OBSESSIVE-COMPULSIVE DISORDER
     Dosage: 20MG.  1 DAILY  P.O.
     Route: 048
     Dates: start: 20071203, end: 20071227
  2. ESTRADIOL [Concomitant]
  3. HYDROCHLOROTHIAZIDE [Concomitant]
  4. TIAZAC XT [Concomitant]
  5. LEVOTHYROXINE SODIUM [Concomitant]
  6. NEXIUM [Concomitant]
  7. CLONAZEPAM [Concomitant]

REACTIONS (3)
  - ABDOMINAL PAIN [None]
  - AGITATION [None]
  - NAUSEA [None]
